FAERS Safety Report 23866978 (Version 1)
Quarter: 2024Q2

REPORT INFORMATION
  Report Type: Report from Study
  Country: CA (occurrence: CA)
  Receive Date: 20240517
  Receipt Date: 20240517
  Transmission Date: 20240716
  Serious: Yes (Hospitalization)
  Sender: FDA-Public Use
  Company Number: CA-002147023-NVSC2022CA260648

PATIENT
  Sex: Male

DRUGS (4)
  1. HYRIMOZ [Suspect]
     Active Substance: ADALIMUMAB-ADAZ
     Dosage: 80 MG, WEEKELY
     Route: 058
     Dates: start: 20240510
  2. HYRIMOZ [Suspect]
     Active Substance: ADALIMUMAB-ADAZ
     Indication: Crohn^s disease
     Dosage: 80 MG
     Route: 058
     Dates: start: 20221021
  3. HYRIMOZ [Suspect]
     Active Substance: ADALIMUMAB-ADAZ
     Dosage: 80 MG
     Route: 058
     Dates: start: 20221111
  4. HYRIMOZ [Suspect]
     Active Substance: ADALIMUMAB-ADAZ
     Dosage: UNK
     Route: 065
     Dates: start: 20221118

REACTIONS (12)
  - Influenza [Unknown]
  - Sinusitis [Unknown]
  - Abdominal distension [Unknown]
  - Diarrhoea [Unknown]
  - Migraine [Unknown]
  - Presyncope [Unknown]
  - Dizziness [Unknown]
  - Blood pressure decreased [Unknown]
  - Injection site pain [Unknown]
  - Immune system disorder [Unknown]
  - Illness [Unknown]
  - Off label use [Unknown]
